FAERS Safety Report 12601184 (Version 1)
Quarter: 2016Q3

REPORT INFORMATION
  Report Type: Spontaneous
  Country: IT (occurrence: IT)
  Receive Date: 20160728
  Receipt Date: 20160728
  Transmission Date: 20161109
  Serious: Yes (Other)
  Sender: FDA-Public Use
  Company Number: IT-ACTAVIS-2016-12166

PATIENT
  Age: 83 Year
  Sex: Male

DRUGS (1)
  1. VINORELBINE [Suspect]
     Active Substance: VINORELBINE\VINORELBINE TARTRATE
     Indication: KAPOSI^S SARCOMA
     Dosage: 12 CYCLES ADMINISTERED
     Route: 042

REACTIONS (1)
  - Neutropenia [Unknown]
